FAERS Safety Report 6410237-8 (Version None)
Quarter: 2009Q4

REPORT INFORMATION
  Report Type: 
  Country: None (occurrence: None)
  Receive Date: 20091022
  Receipt Date: 20091019
  Transmission Date: 20100525
  Serious: Yes (Life-Threatening, Other)
  Sender: FDA-Public Use
  Company Number: PHHY2009BR45550

PATIENT
  Age: 46 Year
  Sex: Female
  Weight: 65 kg

DRUGS (5)
  1. ENABLEX [Suspect]
     Indication: GALLBLADDER NON-FUNCTIONING
     Dosage: 7.5 MG; 1 TAB AT NIGHT
     Route: 048
  2. ENABLEX [Suspect]
     Dosage: 15 MG; HALF TABLET/DAY
     Route: 048
     Dates: start: 20091017
  3. ENABLEX [Suspect]
     Dosage: 15 MG; HALF TABLET/DAY
     Route: 048
     Dates: start: 20091018
  4. CITALOPRAM HYDROBROMIDE [Concomitant]
     Dosage: 1 TAB/DAY
     Route: 048
     Dates: start: 20090401
  5. MACRODANTINA [Concomitant]
     Indication: CYSTITIS
     Dosage: 1 CAPSULE IN THE MORNING

REACTIONS (11)
  - ABDOMINAL PAIN [None]
  - DIVERTICULITIS [None]
  - DRY MOUTH [None]
  - FEELING ABNORMAL [None]
  - FLATULENCE [None]
  - GALLBLADDER DISORDER [None]
  - GALLBLADDER PAIN [None]
  - GASTROINTESTINAL INFECTION [None]
  - HYPOAESTHESIA [None]
  - PYREXIA [None]
  - STOOL ANALYSIS ABNORMAL [None]
